FAERS Safety Report 10787954 (Version 1)
Quarter: 2015Q1

REPORT INFORMATION
  Report Type: Report from Study
  Country: US (occurrence: US)
  Receive Date: 20150212
  Receipt Date: 20150212
  Transmission Date: 20150721
  Serious: Yes (Other)
  Sender: FDA-Public Use
  Company Number: US-ROCHE-GNE097167

PATIENT
  Age: 13 Year
  Sex: Male
  Weight: 99 kg

DRUGS (5)
  1. ZOLOFT [Concomitant]
     Active Substance: SERTRALINE HYDROCHLORIDE
     Indication: ANXIETY DISORDER
     Route: 065
  2. HYDROCORTISONE. [Concomitant]
     Active Substance: HYDROCORTISONE
  3. NUTROPIN AQ [Suspect]
     Active Substance: SOMATROPIN
     Indication: DWARFISM
     Route: 058
  4. PREDNISONE. [Concomitant]
     Active Substance: PREDNISONE
     Dosage: 5 MG IN AM AND 2.5 MG IN PM DAILY
     Route: 048
     Dates: start: 20040430
  5. PROTROPIN [Suspect]
     Active Substance: SOMATREM
     Indication: DWARFISM
     Route: 058
     Dates: start: 19880425, end: 20020608

REACTIONS (5)
  - Kyphosis [Not Recovered/Not Resolved]
  - Acne [Recovering/Resolving]
  - Pollakiuria [Unknown]
  - Micturition urgency [Unknown]
  - Weight decreased [Unknown]

NARRATIVE: CASE EVENT DATE: 20010112
